FAERS Safety Report 20584516 (Version 1)
Quarter: 2022Q1

REPORT INFORMATION
  Report Type: Spontaneous
  Country: US (occurrence: US)
  Receive Date: 20220311
  Receipt Date: 20220311
  Transmission Date: 20220423
  Serious: Yes (Other)
  Sender: FDA-Public Use
  Company Number: US-NOVARTISPH-NVSC2022US052913

PATIENT
  Sex: Female

DRUGS (1)
  1. COSENTYX [Suspect]
     Active Substance: SECUKINUMAB
     Indication: Product used for unknown indication
     Dosage: 150 MG (EVERY OTHER WEEK)
     Route: 065

REACTIONS (5)
  - Psoriatic arthropathy [Unknown]
  - Psoriasis [Unknown]
  - Pyrexia [Unknown]
  - Muscle spasms [Unknown]
  - Electrolyte imbalance [Unknown]
